FAERS Safety Report 5266887-8 (Version None)
Quarter: 2007Q1

REPORT INFORMATION
  Report Type: 
  Country: None (occurrence: None)
  Receive Date: 20070313
  Receipt Date: 20070215
  Transmission Date: 20070707
  Serious: Yes (Death, Life-Threatening, Hospitalization)
  Sender: FDA-Public Use
  Company Number: 2007000311

PATIENT
  Age: 71 Year
  Sex: Female
  Weight: 56 kg

DRUGS (15)
  1. ERLOTINIB (TABLET) [Suspect]
     Indication: NON-SMALL CELL LUNG CANCER
     Dosage: 150 MG (QD), ORAL
     Route: 048
     Dates: start: 20070207, end: 20070214
  2. CARBOPLATIN [Suspect]
     Indication: NON-SMALL CELL LUNG CANCER
     Dosage: 710 MG, INTRAVENOUS
     Route: 042
     Dates: start: 20070206, end: 20070206
  3. PACLITAXEL [Suspect]
     Indication: NON-SMALL CELL LUNG CANCER
     Dosage: 310, INTRAVENOUS
     Route: 042
     Dates: start: 20070205, end: 20070206
  4. TYLENOL [Concomitant]
  5. MULTIVITAMIN [Concomitant]
  6. ASPIRIN [Concomitant]
  7. ZANTAC [Concomitant]
  8. METOPROLOL TARTRATE [Concomitant]
  9. COMPAZINE [Concomitant]
  10. ZOMETA [Concomitant]
  11. LIQUID TEARS [Concomitant]
  12. ATIVAN [Concomitant]
  13. IMODIUM [Concomitant]
  14. ANTIBIOTIC OINTMENT (ANTIBIOTICS FOR TOPICAL USE) [Concomitant]
  15. ZOFRAN [Concomitant]

REACTIONS (24)
  - AREFLEXIA [None]
  - ASPIRATION [None]
  - BACTERIAL INFECTION [None]
  - BLOOD CREATINE PHOSPHOKINASE BB INCREASED [None]
  - BLOOD SODIUM DECREASED [None]
  - CARDIAC ARREST [None]
  - CARDIAC FAILURE [None]
  - CARDIOGENIC SHOCK [None]
  - COMPUTERISED TOMOGRAM ABNORMAL [None]
  - ELECTROMECHANICAL DISSOCIATION [None]
  - FEBRILE NEUTROPENIA [None]
  - GASTROINTESTINAL HAEMORRHAGE [None]
  - HEPATIC FUNCTION ABNORMAL [None]
  - HYPERKALAEMIA [None]
  - HYPERPHOSPHATAEMIA [None]
  - LUNG INFILTRATION [None]
  - MALLORY-WEISS SYNDROME [None]
  - MUCOSAL INFLAMMATION [None]
  - NAUSEA [None]
  - NERVOUS SYSTEM DISORDER [None]
  - NEUTROPHIL COUNT DECREASED [None]
  - RENAL FAILURE [None]
  - RESPIRATORY FAILURE [None]
  - VOMITING [None]
